FAERS Safety Report 21500473 (Version 2)
Quarter: 2022Q4

REPORT INFORMATION
  Report Type: Spontaneous
  Country: PT (occurrence: PT)
  Receive Date: 20221025
  Receipt Date: 20221231
  Transmission Date: 20230113
  Serious: Yes (Congenital Anomaly)
  Sender: FDA-Public Use
  Company Number: PT-002147023-NVSC2022PT238581

PATIENT
  Sex: Female

DRUGS (2)
  1. AIMOVIG [Suspect]
     Active Substance: ERENUMAB-AOOE
     Indication: Foetal exposure during pregnancy
     Dosage: MATERNAL DOSE: 70 MG, Q4W, SUBCUTANEOUS INJ
     Route: 064
     Dates: start: 201910, end: 20200502
  2. FOLIC ACID [Suspect]
     Active Substance: FOLIC ACID
     Indication: Foetal exposure during pregnancy
     Dosage: MATERNAL EXPOSURE DURING PREGNANCY: UNK
     Route: 064

REACTIONS (2)
  - Congenital anomaly [Recovered/Resolved]
  - Foetal exposure during pregnancy [Unknown]
